FAERS Safety Report 10284321 (Version 1)
Quarter: 2014Q3

REPORT INFORMATION
  Report Type: Spontaneous
  Country: US (occurrence: US)
  Receive Date: 20140708
  Receipt Date: 20140708
  Transmission Date: 20150326
  Serious: Yes (Hospitalization, Other)
  Sender: FDA-Public Use
  Company Number: US-PFIZER INC-2014185426

PATIENT
  Age: 49 Year
  Sex: Male
  Weight: 128.35 kg

DRUGS (1)
  1. DIFLUCAN [Suspect]
     Active Substance: FLUCONAZOLE
     Indication: CANDIDA INFECTION
     Dosage: 200 MG, 3X/DAY
     Dates: start: 201302, end: 2014

REACTIONS (3)
  - Arthritis infective [Unknown]
  - Abasia [Unknown]
  - Pyrexia [Unknown]

NARRATIVE: CASE EVENT DATE: 201406
